FAERS Safety Report 7121300-0 (Version None)
Quarter: 2010Q4

REPORT INFORMATION
  Report Type: 
  Country: None (occurrence: None)
  Receive Date: 20101124
  Receipt Date: 20101122
  Transmission Date: 20110411
  Serious: Yes (Other)
  Sender: FDA-Public Use
  Company Number: GR-AMGEN LTD.-QUU440016

PATIENT

DRUGS (6)
  1. NPLATE [Suspect]
     Indication: IDIOPATHIC THROMBOCYTOPENIC PURPURA
     Dosage: 7 A?G/KG, QWK
     Route: 058
     Dates: start: 20090916
  2. COLCHICINE [Suspect]
     Dosage: UNK UNK, BID
     Route: 048
     Dates: start: 20100104, end: 20100108
  3. GLUCOSAMINE W/CHONDROITIN SULFATES [Suspect]
     Dosage: UNK UNK, UNK
     Route: 048
     Dates: start: 20100701, end: 20100730
  4. INSULIN [Concomitant]
     Dosage: UNK UNK, BID
     Route: 058
     Dates: start: 20090701, end: 20100101
  5. GLICLAZIDE [Concomitant]
     Dosage: UNK UNK, UNK
     Route: 048
     Dates: start: 20100130, end: 20100301
  6. METHYLPREDNISOLONE [Concomitant]
     Dosage: UNK UNK, UNK
     Route: 048
     Dates: start: 20090701, end: 20091202

REACTIONS (1)
  - THERAPEUTIC RESPONSE DECREASED [None]
